FAERS Safety Report 9056394 (Version 1)
Quarter: 2013Q1

REPORT INFORMATION
  Report Type: Spontaneous
  Country: CZ (occurrence: CZ)
  Receive Date: 20130204
  Receipt Date: 20130204
  Transmission Date: 20140127
  Serious: Yes (Death, Life-Threatening)
  Sender: FDA-Public Use
  Company Number: CZ-BAYER-2013-014200

PATIENT
  Age: 22 Year
  Sex: Female
  Weight: 84.99 kg

DRUGS (1)
  1. YAZ [Suspect]
     Indication: CONTRACEPTION
     Route: 048
     Dates: start: 2009, end: 2013

REACTIONS (2)
  - Venous thrombosis limb [Not Recovered/Not Resolved]
  - Pulmonary embolism [Fatal]
